FAERS Safety Report 9445634 (Version 1)
Quarter: 2013Q3

REPORT INFORMATION
  Report Type: Spontaneous
  Country: US (occurrence: US)
  Receive Date: 20130807
  Receipt Date: 20130807
  Transmission Date: 20140515
  Serious: Yes (Other)
  Sender: FDA-Public Use
  Company Number: US-JNJFOC-20130801416

PATIENT
  Sex: 0

DRUGS (2)
  1. PANCRELIPASE [Suspect]
     Indication: PANCREATIC DISORDER
     Route: 065
  2. PANCRELIPASE [Suspect]
     Indication: PANCREATIC DISORDER
     Route: 065

REACTIONS (1)
  - Intestinal ulcer [Unknown]
